FAERS Safety Report 7671314-7 (Version None)
Quarter: 2011Q3

REPORT INFORMATION
  Report Type: 
  Country: None (occurrence: None)
  Receive Date: 20110809
  Receipt Date: 20110804
  Transmission Date: 20111222
  Serious: Yes (Hospitalization)
  Sender: FDA-Public Use
  Company Number: FR-SP-2011-06312

PATIENT
  Sex: Male

DRUGS (3)
  1. IMMUCYST [Suspect]
     Indication: BLADDER CANCER
     Route: 043
     Dates: start: 20090101, end: 20101022
  2. TAHOR (ATORVASTATINE) [Concomitant]
     Route: 048
  3. MICARDIS [Concomitant]
     Route: 048

REACTIONS (14)
  - PYREXIA [None]
  - RENAL FAILURE ACUTE [None]
  - HYPERTHERMIA [None]
  - HYPERKALAEMIA [None]
  - LOSS OF CONSCIOUSNESS [None]
  - AMNESIA [None]
  - PHOSPHENES [None]
  - BOVINE TUBERCULOSIS [None]
  - HYPERHIDROSIS [None]
  - ANURIA [None]
  - BACK PAIN [None]
  - CYTOLYTIC HEPATITIS [None]
  - POLLAKIURIA [None]
  - VOMITING [None]
